FAERS Safety Report 5263499-7 (Version None)
Quarter: 2007Q1

REPORT INFORMATION
  Report Type: 
  Country: None (occurrence: None)
  Receive Date: 20061213
  Receipt Date: 20041018
  Transmission Date: 20070707
  Serious: Yes (Other)
  Sender: FDA-Public Use
  Company Number: 2004UW21098

PATIENT
  Age: 67 Year
  Sex: Female
  Weight: 67.131 kg

DRUGS (7)
  1. IRESSA [Suspect]
     Indication: NON-SMALL CELL LUNG CANCER
     Dates: start: 20040801, end: 20041001
  2. SINGULAIR [Concomitant]
  3. TENORMIN [Concomitant]
  4. XANAX [Concomitant]
  5. AMBIEN [Concomitant]
  6. DOXEPIN HCL [Concomitant]
  7. CELLU [Concomitant]

REACTIONS (7)
  - DRY SKIN [None]
  - DYSPNOEA [None]
  - FATIGUE [None]
  - LOWER RESPIRATORY TRACT INFLAMMATION [None]
  - RASH PAPULAR [None]
  - RASH PUSTULAR [None]
  - STOMATITIS [None]
